FAERS Safety Report 21484998 (Version 1)
Quarter: 2022Q4

REPORT INFORMATION
  Report Type: Spontaneous
  Country: US (occurrence: None)
  Receive Date: 20221019
  Receipt Date: 20221019
  Transmission Date: 20230112
  Serious: Yes (Disabling)
  Sender: FDA-Public Use
  Company Number: None

PATIENT
  Age: 34 Year
  Sex: Female
  Weight: 72 kg

DRUGS (12)
  1. MAKENA [Suspect]
     Active Substance: HYDROXYPROGESTERONE CAPROATE
     Indication: Premature labour
     Dosage: FREQUENCY : WEEKLY;?
     Route: 058
     Dates: start: 20210121, end: 20210609
  2. MAKENA [Suspect]
     Active Substance: HYDROXYPROGESTERONE CAPROATE
     Indication: Prophylaxis
  3. METHIMAZOLE [Concomitant]
     Active Substance: METHIMAZOLE
  4. ZOLOFT [Concomitant]
     Active Substance: SERTRALINE HYDROCHLORIDE
  5. SEROQUEL [Concomitant]
     Active Substance: QUETIAPINE FUMARATE
  6. ATIVAN [Concomitant]
     Active Substance: LORAZEPAM
  7. VITAMIN D3 [Concomitant]
     Active Substance: CHOLECALCIFEROL
  8. Multivitamin [Concomitant]
  9. Hair skin and nail vitamin [Concomitant]
  10. COLLAGEN [Concomitant]
     Active Substance: COLLAGEN
  11. PROBIOTICS NOS [Concomitant]
     Active Substance: PROBIOTICS NOS
  12. MELATONIN [Concomitant]
     Active Substance: MELATONIN

REACTIONS (14)
  - Injection site pain [None]
  - Urticaria [None]
  - Post procedural complication [None]
  - Premature labour [None]
  - Exposure during pregnancy [None]
  - Maternal drugs affecting foetus [None]
  - Postpartum disorder [None]
  - Postpartum anxiety [None]
  - Perinatal depression [None]
  - Insomnia [None]
  - Suicidal ideation [None]
  - Hyperthyroidism [None]
  - Blood pressure increased [None]
  - Heart rate increased [None]

NARRATIVE: CASE EVENT DATE: 20211017
